FAERS Safety Report 21421812 (Version 5)
Quarter: 2022Q4

REPORT INFORMATION
  Report Type: Report from Study
  Country: GB (occurrence: GB)
  Receive Date: 20221007
  Receipt Date: 20221221
  Transmission Date: 20230113
  Serious: Yes (Other)
  Sender: FDA-Public Use
  Company Number: GB-JNJFOC-20220845368

PATIENT

DRUGS (50)
  1. DEXAMETHASONE [Suspect]
     Active Substance: DEXAMETHASONE
     Indication: Product used for unknown indication
     Dosage: CYCLE 1
     Route: 065
     Dates: start: 20200522
  2. DEXAMETHASONE [Suspect]
     Active Substance: DEXAMETHASONE
     Dosage: CYCLE 2
     Route: 065
     Dates: start: 20200619
  3. DEXAMETHASONE [Suspect]
     Active Substance: DEXAMETHASONE
     Dosage: CYCLE 3
     Route: 065
     Dates: start: 20200717
  4. DEXAMETHASONE [Suspect]
     Active Substance: DEXAMETHASONE
     Dosage: CYCLE 4
     Route: 065
     Dates: start: 20200819
  5. DEXAMETHASONE [Suspect]
     Active Substance: DEXAMETHASONE
     Dosage: CYCLE 5
     Route: 065
     Dates: start: 20200911
  6. DEXAMETHASONE [Suspect]
     Active Substance: DEXAMETHASONE
     Dosage: CYCLE 6
     Route: 065
     Dates: start: 20201230
  7. DEXAMETHASONE [Suspect]
     Active Substance: DEXAMETHASONE
     Dosage: CYCLE 7
     Route: 065
     Dates: start: 20210127
  8. DEXAMETHASONE [Suspect]
     Active Substance: DEXAMETHASONE
     Dosage: CYCLE 8
     Route: 065
     Dates: start: 20210224
  9. DEXAMETHASONE [Suspect]
     Active Substance: DEXAMETHASONE
     Dosage: CYCLE 9
     Route: 065
     Dates: start: 20210324
  10. DEXAMETHASONE [Suspect]
     Active Substance: DEXAMETHASONE
     Dosage: CYCLE 10
     Route: 065
     Dates: start: 20210421
  11. DEXAMETHASONE [Suspect]
     Active Substance: DEXAMETHASONE
     Dosage: CYCLE 11
     Route: 065
     Dates: start: 20210520
  12. DEXAMETHASONE [Suspect]
     Active Substance: DEXAMETHASONE
     Dosage: CYCLE 12
     Route: 065
     Dates: start: 20210616
  13. DEXAMETHASONE [Suspect]
     Active Substance: DEXAMETHASONE
     Dosage: CYCLE 13
     Route: 065
     Dates: start: 20210923
  14. DEXAMETHASONE [Suspect]
     Active Substance: DEXAMETHASONE
     Dosage: CYCLE 14
     Route: 065
     Dates: start: 20211021
  15. DEXAMETHASONE [Suspect]
     Active Substance: DEXAMETHASONE
     Dosage: CYCLE 15
     Route: 065
     Dates: start: 20211124
  16. DEXAMETHASONE [Suspect]
     Active Substance: DEXAMETHASONE
     Dosage: CYCLE 16
     Route: 065
     Dates: start: 20211222
  17. PANOBINOSTAT [Suspect]
     Active Substance: PANOBINOSTAT
     Indication: Plasma cell myeloma
     Dosage: CYCLE 1
     Route: 065
     Dates: start: 20200522
  18. PANOBINOSTAT [Suspect]
     Active Substance: PANOBINOSTAT
     Dosage: CYCLE 2
     Route: 065
     Dates: start: 20200619
  19. PANOBINOSTAT [Suspect]
     Active Substance: PANOBINOSTAT
     Dosage: CYCLE 3
     Route: 065
     Dates: start: 20200717
  20. PANOBINOSTAT [Suspect]
     Active Substance: PANOBINOSTAT
     Dosage: CYCLE 4
     Route: 065
     Dates: start: 20200819
  21. PANOBINOSTAT [Suspect]
     Active Substance: PANOBINOSTAT
     Dosage: CYCLE 5
     Route: 065
     Dates: start: 20200911
  22. PANOBINOSTAT [Suspect]
     Active Substance: PANOBINOSTAT
     Dosage: CYCLE 6
     Route: 065
     Dates: start: 20201230
  23. PANOBINOSTAT [Suspect]
     Active Substance: PANOBINOSTAT
     Dosage: CYCLE 7
     Route: 065
     Dates: start: 20210127
  24. PANOBINOSTAT [Suspect]
     Active Substance: PANOBINOSTAT
     Dosage: CYCLE 8
     Route: 065
     Dates: start: 20210224
  25. PANOBINOSTAT [Suspect]
     Active Substance: PANOBINOSTAT
     Dosage: CYCLE 9
     Route: 065
     Dates: start: 20210324
  26. PANOBINOSTAT [Suspect]
     Active Substance: PANOBINOSTAT
     Dosage: CYCLE 10
     Route: 065
     Dates: start: 20210421
  27. PANOBINOSTAT [Suspect]
     Active Substance: PANOBINOSTAT
     Dosage: CYCLE 11
     Route: 065
     Dates: start: 20210520
  28. PANOBINOSTAT [Suspect]
     Active Substance: PANOBINOSTAT
     Dosage: CYCLE 12
     Route: 065
     Dates: start: 20210616
  29. PANOBINOSTAT [Suspect]
     Active Substance: PANOBINOSTAT
     Dosage: CYCLE 13
     Route: 065
     Dates: start: 20210923
  30. PANOBINOSTAT [Suspect]
     Active Substance: PANOBINOSTAT
     Dosage: CYCLE 14
     Route: 065
     Dates: start: 20211021
  31. PANOBINOSTAT [Suspect]
     Active Substance: PANOBINOSTAT
     Dosage: CYCLE 15
     Route: 065
     Dates: start: 20211124
  32. PANOBINOSTAT [Suspect]
     Active Substance: PANOBINOSTAT
     Dosage: CYCLE 16
     Route: 065
     Dates: start: 20211222
  33. BORTEZOMIB [Suspect]
     Active Substance: BORTEZOMIB
     Indication: Plasma cell myeloma
     Dosage: CYCLE 1
     Route: 065
     Dates: start: 20200522
  34. BORTEZOMIB [Suspect]
     Active Substance: BORTEZOMIB
     Dosage: CYCLE 2
     Route: 065
     Dates: start: 20200619
  35. BORTEZOMIB [Suspect]
     Active Substance: BORTEZOMIB
     Dosage: CYCLE 3
     Route: 065
     Dates: start: 20200717
  36. BORTEZOMIB [Suspect]
     Active Substance: BORTEZOMIB
     Dosage: CYCLE 4
     Route: 065
     Dates: start: 20200819
  37. BORTEZOMIB [Suspect]
     Active Substance: BORTEZOMIB
     Dosage: CYCLE 5
     Route: 065
     Dates: start: 20200911
  38. BORTEZOMIB [Suspect]
     Active Substance: BORTEZOMIB
     Dosage: CYCLE 6
     Route: 065
     Dates: start: 20201230
  39. BORTEZOMIB [Suspect]
     Active Substance: BORTEZOMIB
     Dosage: CYCLE 7
     Route: 065
     Dates: start: 20210127
  40. BORTEZOMIB [Suspect]
     Active Substance: BORTEZOMIB
     Dosage: CYCLE 8
     Route: 065
     Dates: start: 20210224
  41. BORTEZOMIB [Suspect]
     Active Substance: BORTEZOMIB
     Dosage: CYCLE 9
     Route: 065
     Dates: start: 20210324
  42. BORTEZOMIB [Suspect]
     Active Substance: BORTEZOMIB
     Dosage: CYCLE 10
     Route: 065
     Dates: start: 20210421
  43. BORTEZOMIB [Suspect]
     Active Substance: BORTEZOMIB
     Dosage: CYCLE 11
     Route: 065
     Dates: start: 20210520
  44. BORTEZOMIB [Suspect]
     Active Substance: BORTEZOMIB
     Dosage: CYCLE 12
     Route: 065
     Dates: start: 20210616
  45. BORTEZOMIB [Suspect]
     Active Substance: BORTEZOMIB
     Dosage: CYCLE 13
     Route: 065
     Dates: start: 20210923
  46. BORTEZOMIB [Suspect]
     Active Substance: BORTEZOMIB
     Dosage: CYCLE 14
     Route: 065
     Dates: start: 20211021
  47. BORTEZOMIB [Suspect]
     Active Substance: BORTEZOMIB
     Dosage: CYCLE 15
     Route: 065
     Dates: start: 20211124
  48. BORTEZOMIB [Suspect]
     Active Substance: BORTEZOMIB
     Dosage: CYCLE 16
     Route: 065
     Dates: start: 20211222
  49. LENOGRASTIM [Concomitant]
     Active Substance: LENOGRASTIM
     Indication: Neutropenia
     Dosage: UNK
     Route: 065
     Dates: start: 20210127
  50. LENOGRASTIM [Concomitant]
     Active Substance: LENOGRASTIM
     Indication: Peripheral sensory neuropathy
     Dosage: UNK
     Route: 065
     Dates: start: 20200819, end: 20210217

REACTIONS (6)
  - Swelling [Recovering/Resolving]
  - Feeling abnormal [Recovering/Resolving]
  - Fatigue [Unknown]
  - Back pain [Recovered/Resolved]
  - Breast abscess [Unknown]
  - Limb discomfort [Recovering/Resolving]

NARRATIVE: CASE EVENT DATE: 20200925
